FAERS Safety Report 8581686-7 (Version None)
Quarter: 2012Q3

REPORT INFORMATION
  Report Type: 
  Country: None (occurrence: None)
  Receive Date: 20120809
  Receipt Date: 20120802
  Transmission Date: 20120928
  Serious: Yes (Disabling)
  Sender: FDA-Public Use
  Company Number: PT-ABBOTT-12P-130-0934532-00

PATIENT
  Sex: Male
  Weight: 76.6 kg

DRUGS (5)
  1. STAVUDINE [Concomitant]
     Indication: HIV INFECTION
  2. LAMIVUDINE [Concomitant]
     Indication: HIV INFECTION
  3. INDINAVIR [Concomitant]
     Indication: HIV INFECTION
  4. NORVIR [Suspect]
     Indication: HIV INFECTION
     Route: 048
     Dates: start: 19991115, end: 20000722
  5. MIGRETIL [Interacting]
     Indication: MIGRAINE
     Route: 048
     Dates: start: 20000701

REACTIONS (5)
  - VOMITING [None]
  - PAIN IN EXTREMITY [None]
  - PERIPHERAL ISCHAEMIA [None]
  - MALAISE [None]
  - DRUG INTERACTION [None]
